FAERS Safety Report 7956244-5 (Version None)
Quarter: 2011Q4

REPORT INFORMATION
  Report Type: 
  Country: None (occurrence: None)
  Receive Date: 20111205
  Receipt Date: 20111128
  Transmission Date: 20120403
  Serious: Yes (Hospitalization)
  Sender: FDA-Public Use
  Company Number: US-JNJFOC-20111002537

PATIENT
  Sex: Female
  Weight: 65.32 kg

DRUGS (19)
  1. ARAVA [Concomitant]
  2. CALCIUM [Concomitant]
     Indication: OSTEOPENIA
     Dates: start: 20100401
  3. VITAMIN D [Concomitant]
     Indication: OSTEOPENIA
  4. LASIX [Concomitant]
  5. ACIPHEX [Concomitant]
     Indication: GASTRITIS
  6. ACIPHEX [Concomitant]
     Indication: ULCER
  7. METHOTREXATE [Concomitant]
  8. PRADAXA [Concomitant]
     Indication: ATRIAL FIBRILLATION
  9. SIMPONI [Suspect]
     Indication: RHEUMATOID ARTHRITIS
     Route: 058
     Dates: start: 20090101
  10. FOSAMAX [Concomitant]
     Indication: OSTEOPENIA
     Dates: start: 20100401
  11. COUMADIN [Concomitant]
     Indication: ATRIAL FIBRILLATION
  12. NABUMETONE [Concomitant]
  13. ALENDRONATE SODIUM [Concomitant]
     Indication: ULCER
  14. ALENDRONATE SODIUM [Concomitant]
     Indication: GASTRITIS
  15. DEPO-MEDROL [Concomitant]
     Indication: ARTHRALGIA
     Route: 050
  16. CARDIZEM [Concomitant]
     Indication: TACHYCARDIA
  17. ZANTAC [Concomitant]
  18. PREDNISONE TAB [Concomitant]
     Indication: RHEUMATOID ARTHRITIS
  19. OMEPRAZOLE [Concomitant]

REACTIONS (8)
  - OSTEOPENIA [None]
  - GASTRIC ULCER [None]
  - ATRIAL FIBRILLATION [None]
  - GASTRITIS [None]
  - RENAL FAILURE [None]
  - ACUTE PULMONARY HISTOPLASMOSIS [None]
  - PNEUMONIA LEGIONELLA [None]
  - ANAEMIA [None]
